FAERS Safety Report 10043615 (Version 2)
Quarter: 2014Q2

REPORT INFORMATION
  Report Type: Spontaneous
  Country: FR (occurrence: FR)
  Receive Date: 20140328
  Receipt Date: 20140407
  Transmission Date: 20141212
  Serious: Yes (Other)
  Sender: FDA-Public Use
  Company Number: FR-JNJFOC-20140314303

PATIENT
  Age: 51 Year
  Sex: Male
  Weight: 80 kg

DRUGS (4)
  1. REMICADE [Suspect]
     Indication: CROHN^S DISEASE
     Route: 042
     Dates: start: 2007
  2. REMICADE [Suspect]
     Indication: CROHN^S DISEASE
     Dosage: 35 INFUSIONS
     Route: 042
     Dates: start: 200902, end: 20140221
  3. REMICADE [Suspect]
     Indication: COLITIS ULCERATIVE
     Route: 042
     Dates: start: 2007
  4. REMICADE [Suspect]
     Indication: COLITIS ULCERATIVE
     Dosage: 35 INFUSIONS
     Route: 042
     Dates: start: 200902, end: 20140221

REACTIONS (1)
  - Squamous cell carcinoma of skin [Recovered/Resolved]
